FAERS Safety Report 18523658 (Version 2)
Quarter: 2020Q4

REPORT INFORMATION
  Report Type: Report from Study
  Country: US (occurrence: US)
  Receive Date: 20201119
  Receipt Date: 20201221
  Transmission Date: 20210114
  Serious: Yes (Other)
  Sender: FDA-Public Use
  Company Number: US-BAYER-2020-246196

PATIENT
  Age: 44 Year
  Sex: Male

DRUGS (6)
  1. NEXAVAR [Suspect]
     Active Substance: SORAFENIB
     Indication: SOFT TISSUE SARCOMA
     Dosage: 400 MG, QD
     Route: 048
     Dates: start: 20200902, end: 2020
  2. IBUPROFEN. [Concomitant]
     Active Substance: IBUPROFEN
     Dosage: UNK
  3. ALBUTEROL [SALBUTAMOL] [Concomitant]
     Active Substance: ALBUTEROL
     Dosage: UNK
  4. NEXAVAR [Suspect]
     Active Substance: SORAFENIB
     Indication: SOFT TISSUE SARCOMA
     Dosage: 400 MG DAILY
     Route: 048
     Dates: start: 2020, end: 20201211
  5. HERBAL WATER PILL [Concomitant]
     Dosage: UNK
  6. BUMETANIDE. [Concomitant]
     Active Substance: BUMETANIDE
     Dosage: UNK

REACTIONS (5)
  - Product use in unapproved indication [None]
  - Off label use [None]
  - Drug ineffective [Not Recovered/Not Resolved]
  - Scrotal infection [Not Recovered/Not Resolved]
  - Scrotal swelling [Recovering/Resolving]

NARRATIVE: CASE EVENT DATE: 20200902
